FAERS Safety Report 8561620-6 (Version None)
Quarter: 2012Q3

REPORT INFORMATION
  Report Type: 
  Country: None (occurrence: None)
  Receive Date: 20120802
  Receipt Date: 20120727
  Transmission Date: 20120928
  Serious: Yes (Other)
  Sender: FDA-Public Use
  Company Number: US-JNJFOC-20120604309

PATIENT
  Sex: Male
  Weight: 110.22 kg

DRUGS (3)
  1. XARELTO [Suspect]
     Indication: ATRIAL FIBRILLATION
     Route: 048
     Dates: start: 20120503
  2. ASPIRIN [Concomitant]
  3. CLOPIDOGREL [Concomitant]

REACTIONS (5)
  - HAEMORRHAGE [None]
  - OEDEMA PERIPHERAL [None]
  - CONTUSION [None]
  - EYE HAEMORRHAGE [None]
  - EPISTAXIS [None]
